FAERS Safety Report 9153790 (Version 3)
Quarter: 2013Q3

REPORT INFORMATION
  Report Type: Spontaneous
  Country: IT (occurrence: IT)
  Receive Date: 20130311
  Receipt Date: 20130806
  Transmission Date: 20140515
  Serious: Yes (Other)
  Sender: FDA-Public Use
  Company Number: IT-JNJFOC-20130217000

PATIENT
  Sex: 0

DRUGS (1)
  1. INFLIXIMAB, RECOMBINANT [Suspect]
     Indication: COLITIS ULCERATIVE
     Route: 042

REACTIONS (6)
  - Neoplasm [Unknown]
  - Colorectal cancer [Unknown]
  - Opportunistic infection [Unknown]
  - Colectomy [Unknown]
  - Infusion related reaction [Unknown]
  - Herpes zoster [Unknown]
